FAERS Safety Report 8771305 (Version 1)
Quarter: 2012Q4

REPORT INFORMATION
  Report Type: 
  Country: US (occurrence: US)
  Receive Date: 20120905
  Receipt Date: 20120905
  Transmission Date: 20130627
  Serious: No
  Sender: FDA-Public Use
  Company Number: US-ASTRAZENECA-2012SE09432

PATIENT
  Sex: Female

DRUGS (1)
  1. SYMBICORT PMDI [Suspect]
     Indication: COUGH
     Dosage: FREQUENCY IS UNKNOWN
     Route: 055

REACTIONS (2)
  - Weight increased [Unknown]
  - Off label use [Unknown]
